FAERS Safety Report 11214277 (Version 1)
Quarter: 2015Q2

REPORT INFORMATION
  Report Type: Spontaneous
  Country: JP (occurrence: JP)
  Receive Date: 20150624
  Receipt Date: 20150624
  Transmission Date: 20150821
  Serious: Yes (Death)
  Sender: FDA-Public Use
  Company Number: JP-ROCHE-1597869

PATIENT
  Sex: Male
  Weight: 51 kg

DRUGS (4)
  1. EQUA [Concomitant]
     Active Substance: VILDAGLIPTIN
     Route: 048
     Dates: end: 20120703
  2. DIOVAN [Concomitant]
     Active Substance: VALSARTAN
     Route: 048
     Dates: end: 20120703
  3. MIRCERA [Suspect]
     Active Substance: METHOXY POLYETHYLENE GLYCOL-EPOETIN BETA
     Indication: NEPHROGENIC ANAEMIA
     Dosage: MOST RECENT DOSE ON 03/JUL/2012.
     Route: 042
     Dates: start: 20120703
  4. AMLODIN [Concomitant]
     Active Substance: AMLODIPINE BESYLATE
     Route: 048
     Dates: end: 20120703

REACTIONS (1)
  - Death [Fatal]
